APPROVED DRUG PRODUCT: DEXAMETHASONE SODIUM PHOSPHATE
Active Ingredient: DEXAMETHASONE SODIUM PHOSPHATE
Strength: EQ 4MG PHOSPHATE/ML
Dosage Form/Route: INJECTABLE;INJECTION
Application: A081125 | Product #001
Applicant: TEVA PARENTERAL MEDICINES INC
Approved: Aug 31, 1990 | RLD: No | RS: No | Type: DISCN